FAERS Safety Report 11687906 (Version 2)
Quarter: 2015Q4

REPORT INFORMATION
  Report Type: Spontaneous
  Country: DE (occurrence: DE)
  Receive Date: 20151030
  Receipt Date: 20151201
  Transmission Date: 20160304
  Serious: Yes (Death, Other)
  Sender: FDA-Public Use
  Company Number: DE-CELGENE-DEU-2015104987

PATIENT
  Sex: Female
  Weight: 65 kg

DRUGS (5)
  1. STAPHYLEX [Concomitant]
     Active Substance: FLUCLOXACILLIN
     Indication: ERYSIPELAS
     Route: 065
     Dates: start: 20131211, end: 20140104
  2. AZACITIDINE. [Suspect]
     Active Substance: AZACITIDINE
     Indication: ACUTE MYELOID LEUKAEMIA
     Route: 065
     Dates: start: 201210, end: 201305
  3. AZACITIDINE. [Suspect]
     Active Substance: AZACITIDINE
     Route: 058
     Dates: start: 20130819, end: 20130920
  4. VELCADE [Concomitant]
     Active Substance: BORTEZOMIB
     Indication: ACUTE MYELOID LEUKAEMIA
     Route: 065
     Dates: start: 201306, end: 201308
  5. MEROPENEM. [Concomitant]
     Active Substance: MEROPENEM
     Indication: EMPYEMA
     Route: 041
     Dates: start: 20131210, end: 20140108

REACTIONS (1)
  - Pneumonia [Fatal]
